FAERS Safety Report 9730402 (Version 2)
Quarter: 2013Q4

REPORT INFORMATION
  Report Type: Spontaneous
  Country: US (occurrence: US)
  Receive Date: 20131202
  Receipt Date: 20131202
  Transmission Date: 20140711
  Serious: No
  Sender: FDA-Public Use
  Company Number: US-BANPHARM-20130589

PATIENT
  Sex: 0

DRUGS (1)
  1. ERGOCALCIFEROL [Suspect]
     Route: 048

REACTIONS (1)
  - Hypersensitivity [Unknown]
